FAERS Safety Report 7067580-1 (Version None)
Quarter: 2010Q4

REPORT INFORMATION
  Report Type: 
  Country: None (occurrence: None)
  Receive Date: 20101028
  Receipt Date: 20101015
  Transmission Date: 20110411
  Serious: Yes (Other)
  Sender: FDA-Public Use
  Company Number: US-ELI_LILLY_AND_COMPANY-US201010004626

PATIENT
  Sex: Female

DRUGS (9)
  1. FORTEO [Suspect]
     Indication: OSTEOPOROSIS
     Dosage: 20 UG, DAILY (1/D)
  2. LESCOL [Concomitant]
     Dosage: 40 MG, DAILY (1/D)
  3. FOSINOPRIL SODIUM [Concomitant]
     Dosage: 10 MG, DAILY (1/D)
  4. NIFEDICAL [Concomitant]
     Dosage: 30 MG, DAILY (1/D)
  5. XALATAN [Concomitant]
     Dosage: 0.005 %, EACH EVENING
     Route: 047
  6. TIMOLOL MALEATE [Concomitant]
     Dosage: UNK, DAILY (1/D)
     Route: 047
  7. CALCIUM CITRATE WITH VITAMIN D [Concomitant]
     Dosage: UNK, DAILY (1/D)
  8. FISH OIL [Concomitant]
     Dosage: UNK, DAILY (1/D)
  9. ALLOPURINOL [Concomitant]
     Indication: GOUT
     Dosage: UNK, EACH EVENING

REACTIONS (2)
  - LYMPHOMA [None]
  - URINARY TRACT INFECTION [None]
